FAERS Safety Report 23100631 (Version 1)
Quarter: 2023Q4

REPORT INFORMATION
  Report Type: Spontaneous
  Country: US (occurrence: None)
  Receive Date: 20231020
  Receipt Date: 20231020
  Transmission Date: 20240110
  Serious: Yes (Hospitalization)
  Sender: FDA-Public Use
  Company Number: None

PATIENT
  Age: 79 Year
  Weight: 88.9 kg

DRUGS (2)
  1. SULFAMETHOXAZOLE AND TRIMETHOPRIM [Suspect]
     Active Substance: SULFAMETHOXAZOLE\TRIMETHOPRIM
     Dosage: OTHER QUANTITY : 800/160;?
     Route: 061
     Dates: start: 20230201, end: 20230209
  2. LISINOPRIL AND HYDROCHLOROTHIAZIDE [Suspect]
     Active Substance: HYDROCHLOROTHIAZIDE\LISINOPRIL
     Dosage: OTHER QUANTITY : 25/20 MG;?OTHER FREQUENCY : AM;?
     Route: 048
     Dates: start: 20220803, end: 20230209

REACTIONS (2)
  - Hyperkalaemia [None]
  - Blood creatinine increased [None]

NARRATIVE: CASE EVENT DATE: 20230208
